FAERS Safety Report 6228824-9 (Version None)
Quarter: 2009Q2

REPORT INFORMATION
  Report Type: 
  Country: None (occurrence: None)
  Receive Date: 20090615
  Receipt Date: 20090608
  Transmission Date: 20091009
  Serious: Yes (Hospitalization, Other)
  Sender: FDA-Public Use
  Company Number: PHEH2009US05900

PATIENT
  Age: 62 Year
  Sex: Female
  Weight: 69.841 kg

DRUGS (11)
  1. RECLAST [Suspect]
     Indication: OSTEOPOROSIS
     Dosage: 5 MG, UNK
     Route: 042
     Dates: start: 20090601
  2. SODIUM PHOSPHATE [Concomitant]
  3. NASONEX [Concomitant]
  4. ALBUTEROL [Concomitant]
  5. LIPITOR [Concomitant]
  6. TOPROL-XL [Concomitant]
  7. BENICAR [Concomitant]
  8. ACETYLSALICYLIC ACID SRT [Concomitant]
  9. ADVAIR HFA [Concomitant]
  10. CHANTIX [Concomitant]
  11. LOZAAL [Concomitant]

REACTIONS (5)
  - BLOOD CALCIUM DECREASED [None]
  - FATIGUE [None]
  - NAUSEA [None]
  - RENAL FAILURE CHRONIC [None]
  - VOMITING [None]
